FAERS Safety Report 5626001-3 (Version None)
Quarter: 2008Q1

REPORT INFORMATION
  Report Type: 
  Country: None (occurrence: None)
  Receive Date: 20080214
  Receipt Date: 20080207
  Transmission Date: 20080703
  Serious: Yes (Death, Other)
  Sender: FDA-Public Use
  Company Number: PHHY2008JP01336

PATIENT
  Age: 19 Year
  Sex: Male
  Weight: 57 kg

DRUGS (3)
  1. GLEEVEC [Suspect]
     Route: 048
  2. MOLECULE TARGETING THERAPY [Concomitant]
  3. GEFITINIB [Concomitant]

REACTIONS (3)
  - CYSTITIS HAEMORRHAGIC [None]
  - HYPOGLYCAEMIA [None]
  - MALIGNANT NEOPLASM PROGRESSION [None]
